FAERS Safety Report 12425125 (Version 1)
Quarter: 2016Q2

REPORT INFORMATION
  Report Type: Spontaneous
  Country: US (occurrence: US)
  Receive Date: 20160601
  Receipt Date: 20160601
  Transmission Date: 20160815
  Serious: No
  Sender: FDA-Public Use
  Company Number: US-MYLANLABS-2016M1007884

PATIENT
  Age: 62 Year
  Sex: Male

DRUGS (2)
  1. LIDOCAINE PATCH [Suspect]
     Active Substance: LIDOCAINE
     Indication: OFF LABEL USE
     Dosage: 1 DF, QD, 12 HRS ON, 12 HRS OFF
     Route: 003
     Dates: start: 201512, end: 201601
  2. LIDOCAINE PATCH [Suspect]
     Active Substance: LIDOCAINE
     Indication: PAIN
     Dosage: 1 DF, QD, 12 HRS ON, 12 HRS OFF
     Route: 003
     Dates: start: 201512, end: 201601

REACTIONS (3)
  - Product quality issue [Recovered/Resolved]
  - Drug ineffective for unapproved indication [Recovered/Resolved]
  - Product adhesion issue [Recovered/Resolved]

NARRATIVE: CASE EVENT DATE: 201512
